FAERS Safety Report 7680613-4 (Version None)
Quarter: 2011Q3

REPORT INFORMATION
  Report Type: 
  Country: None (occurrence: None)
  Receive Date: 20110812
  Receipt Date: 20110801
  Transmission Date: 20111222
  Serious: Yes (Hospitalization, Other)
  Sender: FDA-Public Use
  Company Number: US-ELI_LILLY_AND_COMPANY-US201108001190

PATIENT
  Age: 11 Year

DRUGS (1)
  1. OLANZAPINE [Suspect]

REACTIONS (3)
  - OFF LABEL USE [None]
  - SOMNOLENCE [None]
  - TRANSAMINASES INCREASED [None]
